FAERS Safety Report 17142459 (Version 1)
Quarter: 2019Q4

REPORT INFORMATION
  Report Type: Spontaneous
  Country: SE (occurrence: SE)
  Receive Date: 20191211
  Receipt Date: 20191211
  Transmission Date: 20200122
  Serious: Yes (Hospitalization)
  Sender: FDA-Public Use
  Company Number: SE-JNJFOC-20191206031

PATIENT
  Age: 23 Year
  Sex: Female

DRUGS (5)
  1. STESOLID [Suspect]
     Active Substance: DIAZEPAM
     Indication: PRODUCT USED FOR UNKNOWN INDICATION
     Dosage: ^5 MG 25 MG^
     Route: 048
     Dates: start: 20181123, end: 20181123
  2. PROPAVAN [Suspect]
     Active Substance: PROPIOMAZINE
     Indication: PRODUCT USED FOR UNKNOWN INDICATION
     Dosage: 80 TABLETS A 25 MG
     Route: 048
     Dates: start: 20181123, end: 20181123
  3. RISPERDAL [Suspect]
     Active Substance: RISPERIDONE
     Indication: PRODUCT USED FOR UNKNOWN INDICATION
     Dosage: 10 ST A 0,5 MG
     Route: 048
     Dates: start: 20181123, end: 20181123
  4. ZOPICLONE [Suspect]
     Active Substance: ZOPICLONE
     Indication: PRODUCT USED FOR UNKNOWN INDICATION
     Dosage: 10 TABLET 7.5 MG
     Route: 048
     Dates: start: 20181123, end: 20181123
  5. LYRICA [Suspect]
     Active Substance: PREGABALIN
     Indication: PRODUCT USED FOR UNKNOWN INDICATION
     Dosage: 14 ST A 150 MG
     Route: 065
     Dates: start: 20181123, end: 20181123

REACTIONS (3)
  - Somnolence [Unknown]
  - Intentional self-injury [Unknown]
  - Intentional overdose [Unknown]

NARRATIVE: CASE EVENT DATE: 20181123
